FAERS Safety Report 16465633 (Version 1)
Quarter: 2019Q2

REPORT INFORMATION
  Report Type: Spontaneous
  Country: US (occurrence: US)
  Receive Date: 20190621
  Receipt Date: 20190621
  Transmission Date: 20190711
  Serious: No
  Sender: FDA-Public Use
  Company Number: US-ANIPHARMA-2018-US-018967

PATIENT
  Sex: 0

DRUGS (1)
  1. ATACAND [Suspect]
     Active Substance: CANDESARTAN CILEXETIL
     Indication: BLOOD PRESSURE MANAGEMENT
     Dosage: 32 MG
     Dates: start: 2014

REACTIONS (3)
  - Vision blurred [Unknown]
  - Feeling abnormal [Unknown]
  - Drug ineffective [Unknown]
